FAERS Safety Report 7764912-3 (Version None)
Quarter: 2011Q3

REPORT INFORMATION
  Report Type: 
  Country: None (occurrence: None)
  Receive Date: 20110921
  Receipt Date: 20110915
  Transmission Date: 20111222
  Serious: Yes (Hospitalization)
  Sender: FDA-Public Use
  Company Number: BE-ROCHE-785228

PATIENT
  Age: 48 Year
  Sex: Female
  Weight: 90.7 kg

DRUGS (3)
  1. RIBAVIRIN [Suspect]
     Route: 065
  2. TELAPREVIR [Suspect]
     Route: 065
  3. PEGINTERFERON ALFA-2A [Suspect]
     Route: 065

REACTIONS (6)
  - PULMONARY HYPERTENSION [None]
  - ELECTROCARDIOGRAM T WAVE INVERSION [None]
  - ANAEMIA [None]
  - TRICUSPID VALVE INCOMPETENCE [None]
  - SYNCOPE [None]
  - DILATATION VENTRICULAR [None]
